FAERS Safety Report 9417940 (Version 1)
Quarter: 2013Q3

REPORT INFORMATION
  Report Type: Spontaneous
  Country: IT (occurrence: IT)
  Receive Date: 20130724
  Receipt Date: 20130724
  Transmission Date: 20140515
  Serious: Yes (Other)
  Sender: FDA-Public Use
  Company Number: IT-BRISTOL-MYERS SQUIBB COMPANY-19126549

PATIENT
  Sex: Male

DRUGS (4)
  1. ENTECAVIR [Suspect]
     Indication: PROPHYLAXIS
  2. BACTRIM [Suspect]
     Indication: VASCULITIS
  3. CYCLOPHOSPHAMIDE [Suspect]
     Indication: VASCULITIS
  4. CORTISONE [Suspect]
     Indication: VASCULITIS

REACTIONS (1)
  - Agranulocytosis [Unknown]
